FAERS Safety Report 4902200-0 (Version None)
Quarter: 2006Q1

REPORT INFORMATION
  Report Type: 
  Country: None (occurrence: None)
  Receive Date: 20060207
  Receipt Date: 20051221
  Transmission Date: 20060701
  Serious: Yes (Other)
  Sender: FDA-Public Use
  Company Number: US-ROCHE-430308

PATIENT
  Age: 65 Year
  Sex: Female
  Weight: 64.6 kg

DRUGS (3)
  1. KYTRIL [Suspect]
     Indication: ANTIEMETIC SUPPORTIVE CARE
     Route: 042
     Dates: start: 20051221
  2. DECADRON PHOSPHATE [Suspect]
     Indication: DRUG USE FOR UNKNOWN INDICATION
     Route: 065
  3. CISPLATIN [Suspect]
     Indication: DRUG USE FOR UNKNOWN INDICATION
     Dosage: REPORTED AS CISPALATIN.
     Route: 065

REACTIONS (6)
  - ABDOMINAL PAIN [None]
  - HYPERHIDROSIS [None]
  - PRURITUS [None]
  - RASH [None]
  - RASH GENERALISED [None]
  - RETCHING [None]
